FAERS Safety Report 6521317-0 (Version None)
Quarter: 2009Q4

REPORT INFORMATION
  Report Type: 
  Country: None (occurrence: None)
  Receive Date: 20091230
  Receipt Date: 20091223
  Transmission Date: 20100525
  Serious: Yes (Hospitalization)
  Sender: FDA-Public Use
  Company Number: US-BAXTER-2009BH019766

PATIENT

DRUGS (1)
  1. HEPARIN SODIUM 1,000 UNITS AND SODIUM CHLORIDE 0.9% [Suspect]
     Indication: ANTICOAGULANT THERAPY
     Route: 065
     Dates: start: 20091216

REACTIONS (3)
  - DEVICE FAILURE [None]
  - INJURY [None]
  - OVERDOSE [None]
